FAERS Safety Report 6811882-8 (Version None)
Quarter: 2010Q2

REPORT INFORMATION
  Report Type: 
  Country: None (occurrence: None)
  Receive Date: 20100628
  Receipt Date: 20100617
  Transmission Date: 20101027
  Serious: Yes (Hospitalization)
  Sender: FDA-Public Use
  Company Number: 2010SP006976

PATIENT
  Age: 55 Year
  Sex: Female
  Weight: 61 kg

DRUGS (10)
  1. PEGINTERFERON ALFA-2B [Suspect]
     Indication: HEPATITIS C
     Dosage: 0.35 ML;QW;SC
     Route: 058
     Dates: start: 20090707, end: 20100202
  2. LOXONIN [Concomitant]
  3. KETOPROFEN [Concomitant]
  4. GASTER D [Concomitant]
  5. METHYCOBAL [Concomitant]
  6. OMEPRAZOLE [Concomitant]
  7. ADETPHOS [Concomitant]
  8. DASEN [Concomitant]
  9. MUCODYNE [Concomitant]
  10. PREDONINE [Concomitant]

REACTIONS (3)
  - MENIERE'S DISEASE [None]
  - TINNITUS [None]
  - VERTIGO [None]
